FAERS Safety Report 10660818 (Version 1)
Quarter: 2014Q4

REPORT INFORMATION
  Report Type: Other
  Country: IT (occurrence: IT)
  Receive Date: 20141217
  Receipt Date: 20141217
  Transmission Date: 20150529
  Serious: Yes (Hospitalization)
  Sender: FDA-Public Use
  Company Number: IT-MYLANLABS-2014M1013746

PATIENT

DRUGS (7)
  1. VOLTAREN [Suspect]
     Active Substance: DICLOFENAC SODIUM
     Indication: PRODUCT USED FOR UNKNOWN INDICATION
     Dosage: 1 % DAILY
     Route: 061
     Dates: start: 20140530, end: 20140601
  2. NADROPARIN CALCIUM [Suspect]
     Active Substance: NADROPARIN CALCIUM
     Indication: OEDEMA PERIPHERAL
     Dosage: 3800 LU DAILY
     Route: 058
     Dates: start: 20140616, end: 20140630
  3. CARDIOASPIRIN [Suspect]
     Active Substance: ASPIRIN
     Indication: OEDEMA PERIPHERAL
     Dosage: 100 MG DAILY
     Route: 048
     Dates: start: 20140616, end: 20140710
  4. CIPROFLOXACIN. [Suspect]
     Active Substance: CIPROFLOXACIN
     Indication: PYREXIA
     Dosage: 750 MG DAILY
     Route: 048
     Dates: start: 20140702, end: 20140707
  5. ALLOPURINOL. [Suspect]
     Active Substance: ALLOPURINOL
     Indication: OEDEMA PERIPHERAL
     Dosage: 150 MG DAILY
     Route: 048
     Dates: start: 20140616, end: 20140710
  6. DECODERM [Suspect]
     Active Substance: FLUPREDNIDENE ACETATE
     Indication: DERMATITIS ATOPIC
     Dosage: 1 DF DAILY
     Route: 061
     Dates: start: 20140609, end: 20140615
  7. NEODUPLAMOX [Suspect]
     Active Substance: AMOXICILLIN\CLAVULANATE POTASSIUM
     Indication: PYREXIA
     Dosage: 2 G DAILY
     Route: 048
     Dates: start: 20140617, end: 20140701

REACTIONS (2)
  - Cutaneous vasculitis [Recovered/Resolved]
  - Oedema [Recovered/Resolved]

NARRATIVE: CASE EVENT DATE: 20140710
